FAERS Safety Report 8696693 (Version 4)
Quarter: 2012Q4

REPORT INFORMATION
  Report Type: 
  Country: IE (occurrence: IE)
  Receive Date: 20120801
  Receipt Date: 20120918
  Transmission Date: 20130627
  Serious: Yes (Hospitalization)
  Sender: FDA-Public Use
  Company Number: IE-BAYER-2012-052665

PATIENT
  Age: 48 Year
  Sex: Male

DRUGS (14)
  1. NEXAVAR [Suspect]
     Indication: METASTATIC SALIVARY GLAND CANCER
     Dosage: 400 mg, BID
     Route: 048
     Dates: start: 20120120, end: 20120705
  2. NEXAVAR [Suspect]
     Indication: METASTATIC SALIVARY GLAND CANCER
     Dosage: 400 mg, BID
     Dates: start: 20120719
  3. NEXAVAR [Suspect]
     Indication: METASTATIC SALIVARY GLAND CANCER
     Dosage: UNK
     Dates: end: 20120723
  4. INNOHEP [Concomitant]
     Dosage: UNK
  5. SERETIDE [Concomitant]
     Route: 055
  6. LYRICA [Concomitant]
     Dosage: 150 mg, BID
     Route: 048
  7. OXYCONTIN [Concomitant]
     Dosage: 120 mg, BID
     Route: 048
  8. OXYNORM [Concomitant]
     Dosage: 20 mg, PRN
  9. CYCLIZINE [Concomitant]
     Dosage: 50 g, PRN
     Route: 048
  10. ATIVAN [Concomitant]
     Dosage: 0.5 mg, UNK
  11. DEXAMETHAZONE-PIX [Concomitant]
     Dosage: 4 mg, UNK
     Route: 048
  12. XANAX [Concomitant]
     Dosage: 0.5 mg, BID
     Route: 048
  13. LACTULOSE [Concomitant]
     Dosage: 15 ml, PRN
  14. MYCOSTATIN [Concomitant]
     Dosage: UNK UNK, QID

REACTIONS (10)
  - Pulmonary embolism [None]
  - Lower respiratory tract infection [None]
  - Dyspnoea [None]
  - Chest discomfort [None]
  - Abdominal pain [None]
  - Pain in extremity [None]
  - Malaise [None]
  - Respiratory tract infection [None]
  - Pyrexia [None]
  - Hypotension [None]
